FAERS Safety Report 8918734 (Version 1)
Quarter: 2012Q4

REPORT INFORMATION
  Report Type: 
  Country: US (occurrence: US)
  Receive Date: 20121120
  Receipt Date: 20121120
  Transmission Date: 20130627
  Serious: No
  Sender: FDA-Public Use
  Company Number: US-ASTRAZENECA-2012SE20393

PATIENT
  Sex: Female

DRUGS (3)
  1. NEXIUM [Suspect]
     Indication: GASTROOESOPHAGEAL REFLUX DISEASE
     Dosage: TAKING EVERY OTHER DAY
     Route: 048
  2. FOSAMAX [Concomitant]
     Indication: BONE DISORDER
  3. ATELVIA [Concomitant]
     Indication: BONE DISORDER

REACTIONS (5)
  - Sleep disorder due to general medical condition, insomnia type [Unknown]
  - Therapeutic response unexpected [Unknown]
  - Drug dependence [Unknown]
  - Abdominal discomfort [Unknown]
  - Off label use [Unknown]
